FAERS Safety Report 5619911-4 (Version None)
Quarter: 2008Q1

REPORT INFORMATION
  Report Type: 
  Country: None (occurrence: None)
  Receive Date: 20080208
  Receipt Date: 20070625
  Transmission Date: 20080703
  Serious: No
  Sender: FDA-Public Use
  Company Number: US-ABBOTT-07P-163-0375725-00

PATIENT
  Sex: Female
  Weight: 70.869 kg

DRUGS (3)
  1. VICODIN [Suspect]
     Indication: DRUG USE FOR UNKNOWN INDICATION
     Dosage: 2 PILLS IN THE MORNING, AND 2 PILLS IN THE EVENING
  2. RIBAVIRIN [Suspect]
     Indication: HEPATITIS C VIRUS
     Dates: start: 20070104, end: 20070627
  3. PEGASYS [Suspect]
     Indication: HEPATITIS C
     Dates: start: 20070104, end: 20070627

REACTIONS (16)
  - AGEUSIA [None]
  - BLINDNESS [None]
  - BURSITIS [None]
  - DEHYDRATION [None]
  - DRY EYE [None]
  - DRY MOUTH [None]
  - DYSGEUSIA [None]
  - HALO VISION [None]
  - JOINT STIFFNESS [None]
  - JOINT SWELLING [None]
  - PAIN [None]
  - PARAESTHESIA [None]
  - SINUS CONGESTION [None]
  - VISUAL ACUITY REDUCED [None]
  - WEIGHT DECREASED [None]
  - WHITE BLOOD CELL COUNT DECREASED [None]
